FAERS Safety Report 20658265 (Version 1)
Quarter: 2022Q1

REPORT INFORMATION
  Report Type: Spontaneous
  Country: US (occurrence: None)
  Receive Date: 20220330
  Receipt Date: 20220330
  Transmission Date: 20220423
  Serious: No
  Sender: FDA-Public Use
  Company Number: None

PATIENT
  Age: 53 Year
  Sex: Female
  Weight: 117 kg

DRUGS (6)
  1. MONTELUKAST SODIUM [Suspect]
     Active Substance: MONTELUKAST SODIUM
     Indication: Asthma
     Dosage: FREQUENCY : AT BEDTIME;?
     Route: 048
     Dates: start: 20220307, end: 20220329
  2. SERTRALINE [Concomitant]
     Active Substance: SERTRALINE HYDROCHLORIDE
  3. LAMOTRIGINE [Concomitant]
     Active Substance: LAMOTRIGINE
  4. LISINOPRIL [Concomitant]
     Active Substance: LISINOPRIL
  5. LORAZEPAM [Concomitant]
     Active Substance: LORAZEPAM
  6. BENADRYL [Concomitant]
     Active Substance: DIPHENHYDRAMINE HYDROCHLORIDE

REACTIONS (9)
  - Depression [None]
  - Irritability [None]
  - Anger [None]
  - Hallucination, auditory [None]
  - Malaise [None]
  - Suicidal ideation [None]
  - Insomnia [None]
  - Impaired work ability [None]
  - Anger [None]

NARRATIVE: CASE EVENT DATE: 20220328
